FAERS Safety Report 18416146 (Version 1)
Quarter: 2020Q4

REPORT INFORMATION
  Report Type: Spontaneous
  Country: AU (occurrence: AU)
  Receive Date: 20201022
  Receipt Date: 20201022
  Transmission Date: 20210114
  Serious: Yes (Other)
  Sender: FDA-Public Use
  Company Number: AU-IPSEN BIOPHARMACEUTICALS, INC.-2020-19595

PATIENT
  Sex: Female

DRUGS (4)
  1. DYSPORT [Suspect]
     Active Substance: ABOBOTULINUMTOXINA
     Indication: SKIN WRINKLING
     Dosage: 65 UNITS (GLABELLA: 30 IU, FRONTALIS: 20 IU , ORBIT OCC: 15 IU)
     Route: 030
     Dates: start: 20201001, end: 20201001
  2. DYSPORT [Suspect]
     Active Substance: ABOBOTULINUMTOXINA
     Indication: SKIN WRINKLING
  3. DYSPORT [Suspect]
     Active Substance: ABOBOTULINUMTOXINA
     Indication: SKIN WRINKLING
  4. DYSPORT [Suspect]
     Active Substance: ABOBOTULINUMTOXINA
     Indication: OFF LABEL USE

REACTIONS (12)
  - Anxiety [Unknown]
  - Visual impairment [Not Recovered/Not Resolved]
  - Impaired work ability [Unknown]
  - Migraine [Recovering/Resolving]
  - Eyelid ptosis [Unknown]
  - Feeling abnormal [Unknown]
  - Dyspnoea [Not Recovered/Not Resolved]
  - Vision blurred [Unknown]
  - Influenza like illness [Unknown]
  - Ocular discomfort [Unknown]
  - Periorbital swelling [Unknown]
  - Off label use [Unknown]

NARRATIVE: CASE EVENT DATE: 202010
